FAERS Safety Report 6058649-9 (Version None)
Quarter: 2009Q1

REPORT INFORMATION
  Report Type: 
  Country: None (occurrence: None)
  Receive Date: 20090130
  Receipt Date: 20090119
  Transmission Date: 20090719
  Serious: Yes (Hospitalization)
  Sender: FDA-Public Use
  Company Number: AT-PFIZER INC-2008099252

PATIENT

DRUGS (6)
  1. BLINDED *PLACEBO [Suspect]
     Indication: NON-SMALL CELL LUNG CANCER
     Dosage: 37.5 MG, DAILY 4 WEEKS, TDD: 37.5 MG
     Route: 048
     Dates: start: 20081107
  2. BLINDED SUNITINIB MALATE [Suspect]
     Indication: NON-SMALL CELL LUNG CANCER
     Dosage: 37.5 MG, DAILY 4 WEEKS, TDD: 37.5 MG
     Route: 048
     Dates: start: 20081107
  3. *ERLOTINIB [Suspect]
     Indication: NON-SMALL CELL LUNG CANCER
     Dosage: 4 WEEKS DAILY
     Route: 048
     Dates: start: 20081107
  4. DIHYDROCODEINE BITARTRATE INJ [Concomitant]
     Route: 048
     Dates: start: 20081110
  5. SPIRIVA [Concomitant]
     Route: 055
     Dates: start: 20050101
  6. LOPERAMIDE HCL [Concomitant]
     Route: 048
     Dates: start: 20081118

REACTIONS (3)
  - ACNE [None]
  - ANORECTAL DISCOMFORT [None]
  - PALMAR-PLANTAR ERYTHRODYSAESTHESIA SYNDROME [None]
